FAERS Safety Report 21363476 (Version 11)
Quarter: 2025Q3

REPORT INFORMATION
  Report Type: Report from Study
  Country: US (occurrence: US)
  Receive Date: 20220922
  Receipt Date: 20250901
  Transmission Date: 20251021
  Serious: Yes (Hospitalization, Other)
  Sender: TAKEDA
  Company Number: US-TAKEDA-US201821388

PATIENT
  Sex: Female
  Weight: 54 kg

DRUGS (29)
  1. HUMAN IMMUNOGLOBULIN G [Suspect]
     Active Substance: HUMAN IMMUNOGLOBULIN G
     Indication: Immunodeficiency common variable
  2. HUMAN IMMUNOGLOBULIN G [Suspect]
     Active Substance: HUMAN IMMUNOGLOBULIN G
     Indication: Primary immunodeficiency syndrome
  3. HUMAN IMMUNOGLOBULIN G [Suspect]
     Active Substance: HUMAN IMMUNOGLOBULIN G
  4. HUMAN IMMUNOGLOBULIN G [Suspect]
     Active Substance: HUMAN IMMUNOGLOBULIN G
  5. HUMAN IMMUNOGLOBULIN G [Suspect]
     Active Substance: HUMAN IMMUNOGLOBULIN G
     Dosage: 30 GRAM, Q3WEEKS
  6. HUMAN IMMUNOGLOBULIN G [Suspect]
     Active Substance: HUMAN IMMUNOGLOBULIN G
  7. HUMAN IMMUNOGLOBULIN G [Suspect]
     Active Substance: HUMAN IMMUNOGLOBULIN G
  8. HUMAN IMMUNOGLOBULIN G [Suspect]
     Active Substance: HUMAN IMMUNOGLOBULIN G
  9. CUVITRU [Suspect]
     Active Substance: HUMAN IMMUNOGLOBULIN G
     Indication: Immunodeficiency common variable
     Dosage: UNK UNK, 1/WEEK
     Dates: start: 20221115
  10. CUVITRU [Suspect]
     Active Substance: HUMAN IMMUNOGLOBULIN G
  11. CUVITRU [Suspect]
     Active Substance: HUMAN IMMUNOGLOBULIN G
     Dosage: UNK, 1/WEEK
     Dates: end: 20230307
  12. GAMUNEX-C [Suspect]
     Active Substance: HUMAN IMMUNOGLOBULIN G
     Indication: Product used for unknown indication
  13. PROZAC [Suspect]
     Active Substance: FLUOXETINE HYDROCHLORIDE
     Indication: Product used for unknown indication
  14. FEXOFENADINE HYDROCHLORIDE [Concomitant]
     Active Substance: FEXOFENADINE HYDROCHLORIDE
  15. ACETAMINOPHEN [Concomitant]
     Active Substance: ACETAMINOPHEN
  16. EPINEPHRINE [Concomitant]
     Active Substance: EPINEPHRINE
  17. FLOVENT HFA [Concomitant]
     Active Substance: FLUTICASONE PROPIONATE
  18. ALLEGRA ALLERGY [Concomitant]
     Active Substance: FEXOFENADINE HYDROCHLORIDE
  19. SODIUM CHLORIDE [Concomitant]
     Active Substance: SODIUM CHLORIDE
  20. VITAMIN D2 [Concomitant]
     Active Substance: ERGOCALCIFEROL
  21. ALBUTEROL SULFATE [Concomitant]
     Active Substance: ALBUTEROL SULFATE
  22. LIDOCAINE [Concomitant]
     Active Substance: LIDOCAINE
  23. HEPARIN [Concomitant]
     Active Substance: HEPARIN SODIUM
  24. NAPROXEN SODIUM [Concomitant]
     Active Substance: NAPROXEN SODIUM
  25. NURTEC ODT [Concomitant]
     Active Substance: RIMEGEPANT SULFATE
  26. ATIVAN [Concomitant]
     Active Substance: LORAZEPAM
  27. DIPHENHYDRAMINE HYDROCHLORIDE [Concomitant]
     Active Substance: DIPHENHYDRAMINE HYDROCHLORIDE
  28. SODIUM CHLORIDE [Concomitant]
     Active Substance: SODIUM CHLORIDE
  29. VITAMIN D [Concomitant]
     Active Substance: VITAMIN D NOS

REACTIONS (16)
  - Colitis [Unknown]
  - Peripheral swelling [Recovered/Resolved]
  - Drug hypersensitivity [Unknown]
  - Food allergy [Unknown]
  - Illness [Unknown]
  - Inappropriate schedule of product administration [Unknown]
  - Hereditary alpha tryptasaemia [Unknown]
  - COVID-19 [Unknown]
  - Infusion site mass [Unknown]
  - Sinusitis [Unknown]
  - Infusion site reaction [Recovered/Resolved]
  - Infusion site discomfort [Recovered/Resolved]
  - Erythema [Unknown]
  - Infusion site pruritus [Unknown]
  - Pain in extremity [Unknown]
  - Headache [Recovered/Resolved]
